FAERS Safety Report 4813505-6 (Version None)
Quarter: 2005Q4

REPORT INFORMATION
  Report Type: 
  Country: None (occurrence: None)
  Receive Date: 20051028
  Receipt Date: 20050217
  Transmission Date: 20060501
  Serious: No
  Sender: FDA-Public Use
  Company Number: US-GLAXOSMITHKLINE-A0546079A

PATIENT
  Age: 20 Year
  Sex: Female

DRUGS (10)
  1. ADVAIR DISKUS 100/50 [Suspect]
     Indication: ASTHMA
     Route: 055
     Dates: start: 20010601
  2. AUGMENTIN '125' [Suspect]
     Indication: VIRAL INFECTION
     Route: 048
     Dates: start: 20050201
  3. AMOXICILLIN [Suspect]
     Indication: VIRAL INFECTION
     Route: 065
     Dates: start: 20050211
  4. SINGULAIR [Concomitant]
     Dosage: 10MG PER DAY
     Route: 048
     Dates: start: 20010808
  5. LEXAPRO [Concomitant]
     Dosage: 10MG PER DAY
     Route: 048
  6. ZYRTEC [Concomitant]
     Dosage: 10MG AS REQUIRED
     Route: 048
     Dates: start: 20011219
  7. IPRATROPIUM BROMIDE [Concomitant]
  8. FLONASE [Concomitant]
     Dates: start: 20040916
  9. ALBUTEROL [Concomitant]
  10. DUONEB [Concomitant]
     Dates: start: 20030129

REACTIONS (4)
  - DRUG EXPOSURE DURING PREGNANCY [None]
  - DYSPNOEA [None]
  - NASAL CONGESTION [None]
  - PHARMACEUTICAL PRODUCT COMPLAINT [None]
